FAERS Safety Report 5679695-0 (Version None)
Quarter: 2008Q1

REPORT INFORMATION
  Report Type: 
  Country: None (occurrence: None)
  Receive Date: 20080325
  Receipt Date: 20080320
  Transmission Date: 20080703
  Serious: Yes (Other)
  Sender: FDA-Public Use
  Company Number: US-ABBOTT-08P-163-0443723-00

PATIENT
  Age: 27 Year
  Sex: Female

DRUGS (2)
  1. KALETRA [Suspect]
     Indication: DRUG EXPOSURE DURING PREGNANCY
     Route: 048
     Dates: start: 20050101
  2. TRUVADA [Suspect]
     Indication: DRUG EXPOSURE DURING PREGNANCY
     Route: 048
     Dates: start: 20050101

REACTIONS (1)
  - ABORTION SPONTANEOUS [None]
